FAERS Safety Report 7466913-1 (Version None)
Quarter: 2011Q2

REPORT INFORMATION
  Report Type: 
  Country: None (occurrence: None)
  Receive Date: 20110505
  Receipt Date: 20110505
  Transmission Date: 20111010
  Serious: Yes (Death, Hospitalization)
  Sender: FDA-Public Use
  Company Number: None

PATIENT
  Age: 79 Year
  Sex: Female
  Weight: 79.5 kg

DRUGS (3)
  1. OXALIPLATIN [Suspect]
     Dosage: OXALIPLATIN 153 MG ON DAY 1 AND 15 OF EVERY CYCLE. IV
     Route: 042
  2. SORAFENIB [Suspect]
     Indication: PANCREATIC CARCINOMA
     Dosage: SORAFENIB-200 MG 2 TIMES DAILY ORAL
     Route: 048
     Dates: start: 20090423
  3. CAPECITABINE [Suspect]
     Dosage: CAPECITABINE- EVERY 8 HOURS FOR 6 DOSES STARTING DAY 1 AND DAY 15 OF EVERY CYCLE ORAL
     Route: 048

REACTIONS (13)
  - VOMITING [None]
  - NEPHROLITHIASIS [None]
  - HYPOKALAEMIA [None]
  - CALCULUS URETERIC [None]
  - INFECTION [None]
  - BACK PAIN [None]
  - HAEMATURIA [None]
  - MEDICAL DEVICE COMPLICATION [None]
  - FLANK PAIN [None]
  - THROMBOCYTOPENIA [None]
  - ATRIAL FIBRILLATION [None]
  - NAUSEA [None]
  - HYPOALBUMINAEMIA [None]
